FAERS Safety Report 8566953 (Version 4)
Quarter: 2013Q3

REPORT INFORMATION
  Report Type: Spontaneous
  Country: US (occurrence: US)
  Receive Date: 20120517
  Receipt Date: 20130910
  Transmission Date: 20140515
  Serious: No
  Sender: FDA-Public Use
  Company Number: US-ASTRAZENECA-2012SE30316

PATIENT
  Age: 76 Year
  Sex: Female

DRUGS (4)
  1. ARIMIDEX [Suspect]
     Indication: NEOPLASM MALIGNANT
     Route: 048
     Dates: start: 201205, end: 201303
  2. ARIMIDEX [Suspect]
     Indication: NEOPLASM MALIGNANT
     Dosage: 1 MG DAILY, GENERIC
     Route: 065
     Dates: start: 201306, end: 201306
  3. UNSPECIFIED [Concomitant]
     Indication: THYROID DISORDER
  4. UNPECIFIED VITAMINS [Concomitant]

REACTIONS (13)
  - Limb discomfort [Unknown]
  - Fall [Unknown]
  - Condition aggravated [Unknown]
  - Skin wrinkling [Unknown]
  - Musculoskeletal pain [Unknown]
  - Tongue dry [Recovering/Resolving]
  - Tongue discolouration [Recovering/Resolving]
  - Weight increased [Recovering/Resolving]
  - Weight decreased [Recovering/Resolving]
  - Body height decreased [Not Recovered/Not Resolved]
  - Tongue geographic [Unknown]
  - Bone pain [Unknown]
  - Intentional drug misuse [Unknown]
